FAERS Safety Report 16531776 (Version 1)
Quarter: 2019Q3

REPORT INFORMATION
  Report Type: Spontaneous
  Country: US (occurrence: US)
  Receive Date: 20190703
  Receipt Date: 20190703
  Transmission Date: 20191004
  Serious: Yes (Hospitalization)
  Sender: FDA-Public Use
  Company Number: None

PATIENT
  Age: 62 Year
  Sex: Female

DRUGS (11)
  1. AMZ/TMP DS TAB 800-160 [Concomitant]
  2. CIPROFLOXACIN TAB 500 MG [Concomitant]
     Active Substance: CIPROFLOXACIN
  3. VITAMIN D CAP 50000 UNIT [Concomitant]
  4. ORENCIA [Suspect]
     Active Substance: ABATACEPT
     Indication: RHEUMATOID ARTHRITIS
     Dosage: ?          OTHER FREQUENCY:EVERY WEEK;?
     Route: 058
     Dates: start: 20171013
  5. NITROFURANTIN CAP 100 MG [Concomitant]
  6. PREDNISONE TAB 5 MG [Concomitant]
  7. GABAPENTIN CAP 100 MG [Concomitant]
     Active Substance: GABAPENTIN
  8. PILOCARPINE TAB 5 MG [Concomitant]
  9. LOASARTAN POT TAB 50 MG [Concomitant]
  10. HYDROCHLOROT TAB 12.5 MG [Concomitant]
  11. DULOXETINE CAP 30 MG [Concomitant]

REACTIONS (2)
  - Sepsis [None]
  - Kidney infection [None]

NARRATIVE: CASE EVENT DATE: 20190601
